FAERS Safety Report 22372758 (Version 2)
Quarter: 2024Q2

REPORT INFORMATION
  Report Type: Other
  Country: US (occurrence: None)
  Receive Date: 20230526
  Receipt Date: 20240612
  Transmission Date: 20240717
  Serious: Yes (Other)
  Sender: FDA-Public Use
  Company Number: US-ROCHE-3354321

PATIENT
  Age: 68 Year
  Sex: Female
  Weight: 59.474 kg

DRUGS (9)
  1. OCREVUS [Suspect]
     Active Substance: OCRELIZUMAB
     Indication: Relapsing-remitting multiple sclerosis
     Dosage: LAST INFUSION OVER A YEAR AGO ON 05/APR/2023
     Route: 042
     Dates: start: 20210405
  2. RESTASIS [Concomitant]
     Active Substance: CYCLOSPORINE
  3. BIOTIN [Concomitant]
     Active Substance: BIOTIN
  4. POTASSIUM [Concomitant]
     Active Substance: POTASSIUM
  5. MAGNESIUM [Concomitant]
     Active Substance: MAGNESIUM
  6. FISH OIL [Concomitant]
     Active Substance: FISH OIL
  7. VITAMIN C [Concomitant]
     Active Substance: ASCORBIC ACID
  8. VITAMIN D3 [Concomitant]
     Active Substance: CHOLECALCIFEROL
  9. FAMOTIDINE [Concomitant]
     Active Substance: FAMOTIDINE

REACTIONS (6)
  - Mycobacterium avium complex infection [Not Recovered/Not Resolved]
  - Headache [Recovered/Resolved]
  - Fatigue [Recovered/Resolved]
  - Musculoskeletal chest pain [Recovered/Resolved]
  - Dyspnoea [Not Recovered/Not Resolved]
  - Lung disorder [Unknown]

NARRATIVE: CASE EVENT DATE: 20220101
